FAERS Safety Report 9385768 (Version 2)
Quarter: 2013Q3

REPORT INFORMATION
  Report Type: Spontaneous
  Country: US (occurrence: US)
  Receive Date: 20130705
  Receipt Date: 20130919
  Transmission Date: 20140515
  Serious: Yes (Death)
  Sender: FDA-Public Use
  Company Number: US-INCYTE CORPORATION-2013IN001430

PATIENT
  Age: 65 Year
  Sex: Male
  Weight: 71.66 kg

DRUGS (1)
  1. JAKAFI [Suspect]
     Indication: MYELOFIBROSIS
     Dosage: 15 MG, BID
     Route: 048
     Dates: start: 20120820, end: 20130305

REACTIONS (3)
  - Acute leukaemia [Fatal]
  - Disease progression [Fatal]
  - Drug ineffective [Unknown]
